FAERS Safety Report 23017650 (Version 1)
Quarter: 2023Q4

REPORT INFORMATION
  Report Type: Spontaneous
  Country: US (occurrence: US)
  Receive Date: 20231003
  Receipt Date: 20231003
  Transmission Date: 20240110
  Serious: No
  Sender: FDA-Public Use
  Company Number: US-MORPHOSYS US-2023-MOR004075-US

PATIENT
  Age: 75 Year
  Sex: Female

DRUGS (2)
  1. MONJUVI [Suspect]
     Active Substance: TAFASITAMAB-CXIX
     Indication: Neoplasm malignant
     Dosage: COMPLETED 4 CYCLES, INFUSED EVERY WEEK FROM DEC22, THREE WEEKS AGO CHANGED TO EVERY OTHER WEEK
     Route: 065
     Dates: start: 202212, end: 20230411
  2. LENALIDOMIDE [Suspect]
     Active Substance: LENALIDOMIDE
     Indication: Product used for unknown indication
     Route: 065

REACTIONS (1)
  - Urinary tract infection [Not Recovered/Not Resolved]
